FAERS Safety Report 4632950-5 (Version None)
Quarter: 2005Q2

REPORT INFORMATION
  Report Type: 
  Country: None (occurrence: None)
  Receive Date: 20050412
  Receipt Date: 20050401
  Transmission Date: 20051028
  Serious: Yes (Other)
  Sender: FDA-Public Use
  Company Number: BR-ROCHE-400671

PATIENT
  Age: 33 Year
  Sex: Female
  Weight: 43 kg

DRUGS (2)
  1. RIVOTRIL [Suspect]
     Indication: ANXIETY
     Route: 048
     Dates: start: 20020615, end: 20040615
  2. RIVOTRIL [Suspect]
     Route: 048
     Dates: start: 20040615

REACTIONS (2)
  - ABORTION SPONTANEOUS [None]
  - DRUG EXPOSURE DURING PREGNANCY [None]
